FAERS Safety Report 13167865 (Version 1)
Quarter: 2017Q1

REPORT INFORMATION
  Report Type: Other
  Country: US (occurrence: US)
  Receive Date: 20170131
  Receipt Date: 20170131
  Transmission Date: 20170428
  Serious: Yes (Other)
  Sender: FDA-Public Use
  Company Number: US-PINNACLE BIOLOGICS INC-PIN-2017-00007

PATIENT
  Age: 61 Year
  Sex: Male

DRUGS (3)
  1. PHOTOFRIN [Suspect]
     Active Substance: PORFIMER SODIUM
     Indication: ADENOCARCINOMA
  2. PHOTOFRIN [Suspect]
     Active Substance: PORFIMER SODIUM
     Indication: BARRETT^S OESOPHAGUS
     Route: 042
  3. OMEPRAZOLE. [Concomitant]
     Active Substance: OMEPRAZOLE
     Indication: OESOPHAGEAL ULCER

REACTIONS (2)
  - Oesophageal ulcer [Recovered/Resolved]
  - Oesophageal stenosis [Recovered/Resolved]
